FAERS Safety Report 4319619-1 (Version None)
Quarter: 2004Q1

REPORT INFORMATION
  Report Type: 
  Country: None (occurrence: None)
  Receive Date: 20040316
  Receipt Date: 20040225
  Transmission Date: 20041129
  Serious: Yes (Life-Threatening)
  Sender: FDA-Public Use
  Company Number: BCM-000786

PATIENT
  Age: 63 Year
  Sex: Male

DRUGS (1)
  1. IOPAMIDOL-370 [Suspect]
     Indication: COMPUTERISED TOMOGRAM
     Dosage: 100 ML
     Route: 042
     Dates: start: 20040225, end: 20040225

REACTIONS (1)
  - RESPIRATORY FAILURE [None]
